FAERS Safety Report 14609865 (Version 1)
Quarter: 2018Q1

REPORT INFORMATION
  Report Type: Spontaneous
  Country: US (occurrence: US)
  Receive Date: 20180307
  Receipt Date: 20180307
  Transmission Date: 20180509
  Serious: No
  Sender: FDA-Public Use
  Company Number: None

PATIENT
  Age: 39 Year
  Sex: Male
  Weight: 63.5 kg

DRUGS (11)
  1. DOCUSATE SODIUM ORAL [Concomitant]
     Dates: start: 20180306
  2. PROMETHAZINE IV [Concomitant]
     Dates: start: 20180306, end: 20180306
  3. OXYCODONE ORAL [Concomitant]
     Dates: start: 20180306
  4. LIDOCAINE 1% INTRADERMAL [Concomitant]
     Dates: start: 20180306, end: 20180306
  5. SENNA ORAL [Concomitant]
     Dates: start: 20180306
  6. LACTATED RINGERS IV SOLUTION [Concomitant]
     Dates: start: 20180306
  7. MORPHINE [Suspect]
     Active Substance: MORPHINE
     Indication: PROCEDURAL PAIN
     Dosage: ?          OTHER FREQUENCY:EVERY 1 HOURS PRN;?
     Route: 040
     Dates: start: 20180306, end: 20180306
  8. FENTANYL IV [Concomitant]
     Active Substance: FENTANYL
     Dates: start: 20180306, end: 20180306
  9. CEFAZOLIN IV [Concomitant]
     Dates: start: 20180306, end: 20180306
  10. METOCLOPRAMIDE IV [Concomitant]
     Dates: start: 20180306, end: 20180306
  11. ONDANSETRON IV [Concomitant]
     Dates: start: 20180306, end: 20180306

REACTIONS (1)
  - Injection site erythema [None]

NARRATIVE: CASE EVENT DATE: 20180306
